FAERS Safety Report 19415026 (Version 1)
Quarter: 2021Q2

REPORT INFORMATION
  Report Type: Spontaneous
  Country: IN (occurrence: IN)
  Receive Date: 20210615
  Receipt Date: 20210615
  Transmission Date: 20210717
  Serious: Yes (Hospitalization, Other)
  Sender: FDA-Public Use
  Company Number: IN-MACLEODS PHARMACEUTICALS US LTD-MAC2021031450

PATIENT

DRUGS (9)
  1. RIFAMPICIN 450 MG [Suspect]
     Active Substance: RIFAMPIN
     Indication: DISSEMINATED TUBERCULOSIS
     Dosage: 450 MILLIGRAM
     Route: 065
  2. ETHAMBUTOL [Suspect]
     Active Substance: ETHAMBUTOL HYDROCHLORIDE
     Indication: DISSEMINATED TUBERCULOSIS
     Dosage: 800 MILLIGRAM
     Route: 065
  3. PREDNISOLONE 40 MG [Suspect]
     Active Substance: PREDNISOLONE
     Indication: SARCOIDOSIS
     Dosage: 40 MILLIGRAM
     Route: 065
  4. PYRIDOXINE [Concomitant]
     Active Substance: PYRIDOXINE
     Indication: PRODUCT USED FOR UNKNOWN INDICATION
     Dosage: 20 MILLIGRAM, QD
     Route: 065
  5. ISONIAZID 300 MG [Suspect]
     Active Substance: ISONIAZID
     Indication: DISSEMINATED TUBERCULOSIS
     Dosage: 300 MILLIGRAM
     Route: 065
  6. PREDNISOLONE 40 MG [Suspect]
     Active Substance: PREDNISOLONE
     Dosage: 40 MILLIGRAM, QD
     Route: 048
  7. PYRAZINAMIDE 1500 MG [Suspect]
     Active Substance: PYRAZINAMIDE
     Indication: DISSEMINATED TUBERCULOSIS
     Dosage: 1500 MILLIGRAM
     Route: 065
  8. ASPIRIN. [Concomitant]
     Active Substance: ASPIRIN
     Indication: PRODUCT USED FOR UNKNOWN INDICATION
     Dosage: 150 MILLIGRAM
     Route: 065
  9. PREDNISOLONE 40 MG [Suspect]
     Active Substance: PREDNISOLONE
     Dosage: UNK, IN THE NEXT MONTH PREDNISOLONE TAPERED OFF
     Route: 048

REACTIONS (7)
  - Hydrocephalus [Unknown]
  - Drug-induced liver injury [Recovered/Resolved]
  - Disseminated tuberculosis [Recovered/Resolved]
  - Hemiparesis [Recovered/Resolved]
  - Generalised tonic-clonic seizure [Recovered/Resolved]
  - Pleocytosis [Recovered/Resolved]
  - Cerebral salt-wasting syndrome [Unknown]
